FAERS Safety Report 5305648-8 (Version None)
Quarter: 2007Q2

REPORT INFORMATION
  Report Type: 
  Country: None (occurrence: None)
  Receive Date: 20070423
  Receipt Date: 20070423
  Transmission Date: 20071010
  Serious: Yes (Hospitalization)
  Sender: FDA-Public Use
  Company Number: None

PATIENT
  Sex: Female
  Weight: 55.3388 kg

DRUGS (6)
  1. MEGACE [Suspect]
     Indication: PANCREATIC CARCINOMA METASTATIC
     Dosage: 800 MG QDAY PO
     Route: 048
     Dates: start: 20070212, end: 20070329
  2. MEGACE [Suspect]
     Indication: WEIGHT DECREASED
     Dosage: 800 MG QDAY PO
     Route: 048
     Dates: start: 20070212, end: 20070329
  3. GEMZAR + TAXOTERE [Concomitant]
  4. PROCRIT [Concomitant]
  5. GEMZAR [Concomitant]
  6. TARCEVA [Concomitant]

REACTIONS (10)
  - ABDOMINAL DISTENSION [None]
  - ASCITES [None]
  - BACK PAIN [None]
  - CONDITION AGGRAVATED [None]
  - DECREASED APPETITE [None]
  - DEEP VEIN THROMBOSIS [None]
  - FATIGUE [None]
  - FLUID OVERLOAD [None]
  - OEDEMA PERIPHERAL [None]
  - WEIGHT INCREASED [None]
